FAERS Safety Report 19259254 (Version 2)
Quarter: 2021Q2

REPORT INFORMATION
  Report Type: Spontaneous
  Country: US (occurrence: US)
  Receive Date: 20210514
  Receipt Date: 20210604
  Transmission Date: 20210717
  Serious: Yes (Other)
  Sender: FDA-Public Use
  Company Number: US-BRACCO-2021US01942

PATIENT
  Age: 78 Year
  Sex: Female

DRUGS (12)
  1. K?LOR [Concomitant]
     Active Substance: POTASSIUM CHLORIDE
  2. LUMASON [Suspect]
     Active Substance: SULFUR HEXAFLUORIDE
     Indication: ECHOCARDIOGRAM
     Dosage: 2 ML, SINGLE
     Route: 042
     Dates: start: 20210507, end: 20210507
  3. NAPROXEN. [Concomitant]
     Active Substance: NAPROXEN
  4. LUMASON [Suspect]
     Active Substance: SULFUR HEXAFLUORIDE
     Indication: ECHOCARDIOGRAM
     Dosage: 2 ML, SINGLE
     Route: 042
     Dates: start: 20210507, end: 20210507
  5. TAPAZOLE [Concomitant]
     Active Substance: METHIMAZOLE
  6. FLONAZE [Concomitant]
     Active Substance: FLUTICASONE PROPIONATE
  7. VITAMIN D3 [Concomitant]
     Active Substance: CHOLECALCIFEROL
  8. CENTRUM A TO ZINC [Concomitant]
     Active Substance: MINERALS\VITAMINS
  9. ASA [Concomitant]
     Active Substance: ASPIRIN
  10. HYDROCHLOROTHIAZIDE. [Concomitant]
     Active Substance: HYDROCHLOROTHIAZIDE
  11. LUMASON [Suspect]
     Active Substance: SULFUR HEXAFLUORIDE
     Indication: ECHOCARDIOGRAM
     Dosage: 2 ML, SINGLE
     Route: 042
     Dates: start: 20210507, end: 20210507
  12. SIMVASTATIN. [Concomitant]
     Active Substance: SIMVASTATIN

REACTIONS (4)
  - Syncope [Recovered/Resolved]
  - Paraesthesia [Unknown]
  - Orthostatic hypotension [Recovered/Resolved]
  - Panic reaction [Recovered/Resolved]

NARRATIVE: CASE EVENT DATE: 20210507
